FAERS Safety Report 9773317 (Version 1)
Quarter: 2013Q4

REPORT INFORMATION
  Report Type: Spontaneous
  Country: US (occurrence: US)
  Receive Date: 20131219
  Receipt Date: 20131219
  Transmission Date: 20140711
  Serious: Yes (Other)
  Sender: FDA-Public Use
  Company Number: CHPA2013US018508

PATIENT
  Age: 56 Year
  Sex: Male

DRUGS (4)
  1. BUCKLEY^S UNKNOWN [Suspect]
     Indication: PNEUMONIA
     Dosage: 1 TSP, EVERY 3 TO 4 HOURS
     Route: 048
  2. BUCKLEY^S UNKNOWN [Suspect]
     Indication: OFF LABEL USE
  3. BUCKLEY^S COMPLETE [Suspect]
     Indication: PROPHYLAXIS
     Route: 048
  4. BUCKLEY^S COMPLETE [Suspect]
     Indication: OFF LABEL USE

REACTIONS (5)
  - Bronchitis [Not Recovered/Not Resolved]
  - Secretion discharge [Recovered/Resolved]
  - Eye irritation [Recovered/Resolved]
  - Rhinorrhoea [Recovered/Resolved]
  - Therapeutic response unexpected [Unknown]
